FAERS Safety Report 10773061 (Version 1)
Quarter: 2015Q1

REPORT INFORMATION
  Report Type: Other
  Country: US (occurrence: US)
  Receive Date: 20150207
  Receipt Date: 20150207
  Transmission Date: 20150721
  Serious: No
  Sender: FDA-Public Use
  Company Number: US-ACORDA-ACO_106592_2014

PATIENT
  Sex: Male

DRUGS (1)
  1. AMPYRA [Suspect]
     Active Substance: DALFAMPRIDINE
     Indication: NYSTAGMUS
     Dosage: 10 MG, Q 12 HRS
     Route: 048
     Dates: start: 201408

REACTIONS (7)
  - Product use issue [Unknown]
  - Vitreous floaters [Unknown]
  - Altered visual depth perception [Unknown]
  - Diplopia [Unknown]
  - Gait disturbance [Unknown]
  - Headache [Unknown]
  - Balance disorder [Unknown]
